FAERS Safety Report 21651008 (Version 1)
Quarter: 2022Q4

REPORT INFORMATION
  Report Type: Report from Study
  Country: US (occurrence: US)
  Receive Date: 20221128
  Receipt Date: 20221128
  Transmission Date: 20230112
  Serious: Yes (Other)
  Sender: FDA-Public Use
  Company Number: US-BAYER-2022P022287

PATIENT
  Age: 57 Year
  Sex: Female

DRUGS (3)
  1. ADEMPAS [Suspect]
     Active Substance: RIOCIGUAT
     Indication: Pulmonary arterial hypertension
     Dosage: UNK
     Route: 048
     Dates: start: 202210
  2. ADEMPAS [Suspect]
     Active Substance: RIOCIGUAT
     Indication: Pulmonary arterial hypertension
     Dosage: 1.5 UNK
     Route: 048
     Dates: start: 2022, end: 20221113
  3. UPTRAVI [Concomitant]
     Active Substance: SELEXIPAG
     Dosage: 400 MG, BID
     Dates: end: 20221113

REACTIONS (5)
  - Nausea [None]
  - Diarrhoea [None]
  - Vomiting [None]
  - Blood potassium decreased [None]
  - Blood magnesium decreased [None]

NARRATIVE: CASE EVENT DATE: 20221111
